FAERS Safety Report 8589658-3 (Version None)
Quarter: 2012Q3

REPORT INFORMATION
  Report Type: 
  Country: None (occurrence: None)
  Receive Date: 20120813
  Receipt Date: 20120808
  Transmission Date: 20120928
  Serious: Yes (Life-Threatening, Other)
  Sender: FDA-Public Use
  Company Number: US-ASTRAZENECA-2012SE56298

PATIENT
  Age: 72 Year
  Sex: Male

DRUGS (2)
  1. ACCOLATE [Suspect]
     Route: 048
  2. TOPROL-XL [Suspect]
     Route: 048

REACTIONS (4)
  - DRUG DOSE OMISSION [None]
  - COMA [None]
  - BLOOD PRESSURE INADEQUATELY CONTROLLED [None]
  - MALAISE [None]
